FAERS Safety Report 5218195-9 (Version None)
Quarter: 2007Q1

REPORT INFORMATION
  Report Type: 
  Country: None (occurrence: None)
  Receive Date: 20061130
  Receipt Date: 20060919
  Transmission Date: 20070707
  Serious: Yes (Hospitalization, Other)
  Sender: FDA-Public Use
  Company Number: US_0501109641

PATIENT
  Age: 50 Year
  Sex: Male
  Weight: 114.7 kg

DRUGS (11)
  1. ZYPREXA [Suspect]
     Indication: SCHIZOPHRENIA
     Dosage: SEE IMAGE
     Dates: start: 20000101, end: 20010826
  2. ZYPREXA [Suspect]
     Indication: SCHIZOPHRENIA
     Dosage: SEE IMAGE
     Dates: start: 20021021, end: 20021115
  3. ZYPREXA [Suspect]
     Indication: SCHIZOPHRENIA
     Dosage: SEE IMAGE
     Dates: start: 20021210, end: 20041127
  4. ZYPREXA [Suspect]
     Indication: SCHIZOPHRENIA
     Dosage: SEE IMAGE
     Dates: start: 20041227, end: 20050101
  5. ABILIFY [Concomitant]
  6. SEROQUEL [Concomitant]
  7. ZOLOFT [Concomitant]
  8. THORAZINE [Concomitant]
  9. PERPHENAZINE [Concomitant]
  10. RISPERIDONE [Concomitant]
  11. PREDNISONE TAB [Concomitant]

REACTIONS (8)
  - BLOOD CHOLESTEROL INCREASED [None]
  - COMA [None]
  - DEPRESSION [None]
  - DIABETES MELLITUS [None]
  - HYPERGLYCAEMIA [None]
  - HYPERTENSION [None]
  - METABOLIC DISORDER [None]
  - WEIGHT DECREASED [None]
